FAERS Safety Report 4340332-9 (Version None)
Quarter: 2004Q2

REPORT INFORMATION
  Report Type: 
  Country: None (occurrence: None)
  Receive Date: 20040408
  Receipt Date: 20040323
  Transmission Date: 20050107
  Serious: Yes (Death)
  Sender: FDA-Public Use
  Company Number: 234302

PATIENT
  Age: 64 Year
  Sex: Male
  Weight: 100 kg

DRUGS (4)
  1. NOVOSEVEN [Suspect]
     Indication: CEREBRAL HAEMORRHAGE
     Dosage: 40 UG/KG, SINGLE, INTRAVENOUS
     Route: 042
     Dates: start: 20031127
  2. LASIX [Concomitant]
  3. CAPOTEN [Concomitant]
  4. CORVATARD (MOLSIDOMINE) INJ. [Concomitant]

REACTIONS (3)
  - BRAIN HERNIATION [None]
  - DECEREBRATION [None]
  - HYDROCEPHALUS [None]
